FAERS Safety Report 5803590-7 (Version None)
Quarter: 2008Q3

REPORT INFORMATION
  Report Type: 
  Country: None (occurrence: None)
  Receive Date: 20080703
  Receipt Date: 20080618
  Transmission Date: 20090109
  Serious: Yes (Hospitalization)
  Sender: FDA-Public Use
  Company Number: DAB-2008-00032

PATIENT
  Age: 43 Year
  Sex: Female
  Weight: 45.2 kg

DRUGS (5)
  1. PACLITAXEL [Suspect]
     Dosage: INTRAVENOUS
     Route: 042
     Dates: start: 20071211, end: 20071211
  2. CARBOPLATIN [Suspect]
     Dosage: INTRAVENOUS
     Route: 042
     Dates: start: 20071211, end: 20071211
  3. CETIRIZINE HCL [Concomitant]
  4. DOMPERIDONE (DOMPERIDONE) [Concomitant]
  5. PALONOSETRON (PALONOSETRON) [Concomitant]

REACTIONS (9)
  - CHILLS [None]
  - COUGH [None]
  - FEELING HOT [None]
  - HEADACHE [None]
  - INFUSION RELATED REACTION [None]
  - NAUSEA [None]
  - OXYGEN SATURATION DECREASED [None]
  - TACHYCARDIA [None]
  - URTICARIA [None]
